FAERS Safety Report 23314527 (Version 2)
Quarter: 2024Q1

REPORT INFORMATION
  Report Type: Spontaneous
  Country: US (occurrence: US)
  Receive Date: 20231219
  Receipt Date: 20240125
  Transmission Date: 20240409
  Serious: Yes (Death)
  Sender: FDA-Public Use
  Company Number: US-PFIZER INC-202300445891

PATIENT
  Age: 80 Year
  Sex: Male
  Weight: 74.376 kg

DRUGS (2)
  1. VYNDAMAX [Suspect]
     Active Substance: TAFAMIDIS
     Dosage: 61MG ONCE A DAY
  2. TORSEMIDE [Concomitant]
     Active Substance: TORSEMIDE
     Indication: Fluid retention
     Dosage: 3 TABLETS A DAY
     Route: 048

REACTIONS (2)
  - Familial amyloidosis [Fatal]
  - Dysstasia [Unknown]
